FAERS Safety Report 21264904 (Version 2)
Quarter: 2023Q2

REPORT INFORMATION
  Report Type: Other
  Country: ZA (occurrence: None)
  Receive Date: 20220829
  Receipt Date: 20230406
  Transmission Date: 20230721
  Serious: Yes (Other)
  Sender: FDA-Public Use
  Company Number: ZA-ROCHE-3165678

PATIENT
  Age: 51 Year
  Sex: Female

DRUGS (3)
  1. OCREVUS [Suspect]
     Active Substance: OCRELIZUMAB
     Indication: Primary progressive multiple sclerosis
     Dosage: THEREAFTER 600MG EVERY SIX MONTHS, SUBSEQUENT DOSE IN /APR/2022
     Route: 041
     Dates: start: 20211022
  2. METHOTREXATE [Concomitant]
     Active Substance: METHOTREXATE
  3. METHYLPREDNISOLONE [Concomitant]
     Active Substance: METHYLPREDNISOLONE
     Dosage: EVERY 2 TO 3 MONTH

REACTIONS (8)
  - Demyelination [Unknown]
  - White matter lesion [Unknown]
  - Balance disorder [Unknown]
  - Spinal osteoarthritis [Unknown]
  - Vertebral foraminal stenosis [Unknown]
  - Gait disturbance [Unknown]
  - Spinal compression fracture [Unknown]
  - Multiple sclerosis [Unknown]
